FAERS Safety Report 20202966 (Version 4)
Quarter: 2024Q2

REPORT INFORMATION
  Report Type: Report from Study
  Country: US (occurrence: US)
  Receive Date: 20211218
  Receipt Date: 20240410
  Transmission Date: 20240716
  Serious: Yes (Other)
  Sender: FDA-Public Use
  Company Number: US-TAKEDA-2021TUS078493

PATIENT
  Age: 36 Year
  Sex: Male

DRUGS (84)
  1. TEDUGLUTIDE [Suspect]
     Active Substance: TEDUGLUTIDE
     Indication: Short-bowel syndrome
     Dosage: 2 MILLIGRAM, 2/WEEK
     Route: 042
     Dates: start: 20170608, end: 20170823
  2. TEDUGLUTIDE [Suspect]
     Active Substance: TEDUGLUTIDE
     Indication: Short-bowel syndrome
     Dosage: 2 MILLIGRAM, 2/WEEK
     Route: 042
     Dates: start: 20170608, end: 20170823
  3. TEDUGLUTIDE [Suspect]
     Active Substance: TEDUGLUTIDE
     Indication: Short-bowel syndrome
     Dosage: 2 MILLIGRAM, 2/WEEK
     Route: 042
     Dates: start: 20170608, end: 20170823
  4. TEDUGLUTIDE [Suspect]
     Active Substance: TEDUGLUTIDE
     Indication: Short-bowel syndrome
     Dosage: 2 MILLIGRAM, 2/WEEK
     Route: 042
     Dates: start: 20170608, end: 20170823
  5. TEDUGLUTIDE [Suspect]
     Active Substance: TEDUGLUTIDE
     Dosage: 2 MILLIGRAM, 3/WEEK
     Route: 042
     Dates: start: 20170823, end: 20171122
  6. TEDUGLUTIDE [Suspect]
     Active Substance: TEDUGLUTIDE
     Dosage: 2 MILLIGRAM, 3/WEEK
     Route: 042
     Dates: start: 20170823, end: 20171122
  7. TEDUGLUTIDE [Suspect]
     Active Substance: TEDUGLUTIDE
     Dosage: 2 MILLIGRAM, 3/WEEK
     Route: 042
     Dates: start: 20170823, end: 20171122
  8. TEDUGLUTIDE [Suspect]
     Active Substance: TEDUGLUTIDE
     Dosage: 2 MILLIGRAM, 3/WEEK
     Route: 042
     Dates: start: 20170823, end: 20171122
  9. TEDUGLUTIDE [Suspect]
     Active Substance: TEDUGLUTIDE
     Dosage: 2 MILLIGRAM, 3/WEEK
     Route: 042
     Dates: start: 20180425, end: 20190825
  10. TEDUGLUTIDE [Suspect]
     Active Substance: TEDUGLUTIDE
     Dosage: 2 MILLIGRAM, 3/WEEK
     Route: 042
     Dates: start: 20180425, end: 20190825
  11. TEDUGLUTIDE [Suspect]
     Active Substance: TEDUGLUTIDE
     Dosage: 2 MILLIGRAM, 3/WEEK
     Route: 042
     Dates: start: 20180425, end: 20190825
  12. TEDUGLUTIDE [Suspect]
     Active Substance: TEDUGLUTIDE
     Dosage: 2 MILLIGRAM, 3/WEEK
     Route: 042
     Dates: start: 20180425, end: 20190825
  13. TEDUGLUTIDE [Suspect]
     Active Substance: TEDUGLUTIDE
     Dosage: 4 MILLIGRAM, QD
     Route: 042
     Dates: start: 20190926, end: 20191113
  14. TEDUGLUTIDE [Suspect]
     Active Substance: TEDUGLUTIDE
     Dosage: 4 MILLIGRAM, QD
     Route: 042
     Dates: start: 20190926, end: 20191113
  15. TEDUGLUTIDE [Suspect]
     Active Substance: TEDUGLUTIDE
     Dosage: 4 MILLIGRAM, QD
     Route: 042
     Dates: start: 20190926, end: 20191113
  16. TEDUGLUTIDE [Suspect]
     Active Substance: TEDUGLUTIDE
     Dosage: 4 MILLIGRAM, QD
     Route: 042
     Dates: start: 20190926, end: 20191113
  17. TEDUGLUTIDE [Suspect]
     Active Substance: TEDUGLUTIDE
     Dosage: 3.8 MILLIGRAM, 3/WEEK
     Route: 042
     Dates: start: 20191113, end: 20200331
  18. TEDUGLUTIDE [Suspect]
     Active Substance: TEDUGLUTIDE
     Dosage: 3.8 MILLIGRAM, 3/WEEK
     Route: 042
     Dates: start: 20191113, end: 20200331
  19. TEDUGLUTIDE [Suspect]
     Active Substance: TEDUGLUTIDE
     Dosage: 3.8 MILLIGRAM, 3/WEEK
     Route: 042
     Dates: start: 20191113, end: 20200331
  20. TEDUGLUTIDE [Suspect]
     Active Substance: TEDUGLUTIDE
     Dosage: 3.8 MILLIGRAM, 3/WEEK
     Route: 042
     Dates: start: 20191113, end: 20200331
  21. TEDUGLUTIDE [Suspect]
     Active Substance: TEDUGLUTIDE
     Dosage: 3.8 MILLIGRAM, QD
     Route: 042
     Dates: start: 20200331, end: 20200506
  22. TEDUGLUTIDE [Suspect]
     Active Substance: TEDUGLUTIDE
     Dosage: 3.8 MILLIGRAM, QD
     Route: 042
     Dates: start: 20200331, end: 20200506
  23. TEDUGLUTIDE [Suspect]
     Active Substance: TEDUGLUTIDE
     Dosage: 3.8 MILLIGRAM, QD
     Route: 042
     Dates: start: 20200331, end: 20200506
  24. TEDUGLUTIDE [Suspect]
     Active Substance: TEDUGLUTIDE
     Dosage: 3.8 MILLIGRAM, QD
     Route: 042
     Dates: start: 20200331, end: 20200506
  25. TEDUGLUTIDE [Suspect]
     Active Substance: TEDUGLUTIDE
     Dosage: 3.8 MILLIGRAM, 5/WEEK
     Route: 042
     Dates: start: 20200506, end: 20200514
  26. TEDUGLUTIDE [Suspect]
     Active Substance: TEDUGLUTIDE
     Dosage: 3.8 MILLIGRAM, 5/WEEK
     Route: 042
     Dates: start: 20200506, end: 20200514
  27. TEDUGLUTIDE [Suspect]
     Active Substance: TEDUGLUTIDE
     Dosage: 3.8 MILLIGRAM, 5/WEEK
     Route: 042
     Dates: start: 20200506, end: 20200514
  28. TEDUGLUTIDE [Suspect]
     Active Substance: TEDUGLUTIDE
     Dosage: 3.8 MILLIGRAM, 5/WEEK
     Route: 042
     Dates: start: 20200506, end: 20200514
  29. TEDUGLUTIDE [Suspect]
     Active Substance: TEDUGLUTIDE
     Route: 042
     Dates: start: 20200514, end: 20200610
  30. TEDUGLUTIDE [Suspect]
     Active Substance: TEDUGLUTIDE
     Route: 042
     Dates: start: 20200514, end: 20200610
  31. TEDUGLUTIDE [Suspect]
     Active Substance: TEDUGLUTIDE
     Route: 042
     Dates: start: 20200514, end: 20200610
  32. TEDUGLUTIDE [Suspect]
     Active Substance: TEDUGLUTIDE
     Route: 042
     Dates: start: 20200514, end: 20200610
  33. TEDUGLUTIDE [Suspect]
     Active Substance: TEDUGLUTIDE
     Dosage: 3.8 MILLIGRAM, 4/WEEK
     Route: 042
     Dates: start: 20190610, end: 20200621
  34. TEDUGLUTIDE [Suspect]
     Active Substance: TEDUGLUTIDE
     Dosage: 3.8 MILLIGRAM, 4/WEEK
     Route: 042
     Dates: start: 20190610, end: 20200621
  35. TEDUGLUTIDE [Suspect]
     Active Substance: TEDUGLUTIDE
     Dosage: 3.8 MILLIGRAM, 4/WEEK
     Route: 042
     Dates: start: 20190610, end: 20200621
  36. TEDUGLUTIDE [Suspect]
     Active Substance: TEDUGLUTIDE
     Dosage: 3.8 MILLIGRAM, 4/WEEK
     Route: 042
     Dates: start: 20190610, end: 20200621
  37. TEDUGLUTIDE [Suspect]
     Active Substance: TEDUGLUTIDE
     Dosage: 3.8 MILLIGRAM, 5/WEEK
     Route: 042
     Dates: start: 20200621, end: 20200629
  38. TEDUGLUTIDE [Suspect]
     Active Substance: TEDUGLUTIDE
     Dosage: 3.8 MILLIGRAM, 5/WEEK
     Route: 042
     Dates: start: 20200621, end: 20200629
  39. TEDUGLUTIDE [Suspect]
     Active Substance: TEDUGLUTIDE
     Dosage: 3.8 MILLIGRAM, 5/WEEK
     Route: 042
     Dates: start: 20200621, end: 20200629
  40. TEDUGLUTIDE [Suspect]
     Active Substance: TEDUGLUTIDE
     Dosage: 3.8 MILLIGRAM, 5/WEEK
     Route: 042
     Dates: start: 20200621, end: 20200629
  41. TEDUGLUTIDE [Suspect]
     Active Substance: TEDUGLUTIDE
     Dosage: 3.8 MILLIGRAM, 5/WEEK
     Route: 042
     Dates: start: 20200706, end: 20200928
  42. TEDUGLUTIDE [Suspect]
     Active Substance: TEDUGLUTIDE
     Dosage: 3.8 MILLIGRAM, 5/WEEK
     Route: 042
     Dates: start: 20200706, end: 20200928
  43. TEDUGLUTIDE [Suspect]
     Active Substance: TEDUGLUTIDE
     Dosage: 3.8 MILLIGRAM, 5/WEEK
     Route: 042
     Dates: start: 20200706, end: 20200928
  44. TEDUGLUTIDE [Suspect]
     Active Substance: TEDUGLUTIDE
     Dosage: 3.8 MILLIGRAM, 5/WEEK
     Route: 042
     Dates: start: 20200706, end: 20200928
  45. TEDUGLUTIDE [Suspect]
     Active Substance: TEDUGLUTIDE
     Dosage: 3.8 MILLIGRAM, 3/WEEK
     Route: 042
     Dates: start: 20200928, end: 20210108
  46. TEDUGLUTIDE [Suspect]
     Active Substance: TEDUGLUTIDE
     Dosage: 3.8 MILLIGRAM, 3/WEEK
     Route: 042
     Dates: start: 20200928, end: 20210108
  47. TEDUGLUTIDE [Suspect]
     Active Substance: TEDUGLUTIDE
     Dosage: 3.8 MILLIGRAM, 3/WEEK
     Route: 042
     Dates: start: 20200928, end: 20210108
  48. TEDUGLUTIDE [Suspect]
     Active Substance: TEDUGLUTIDE
     Dosage: 3.8 MILLIGRAM, 3/WEEK
     Route: 042
     Dates: start: 20200928, end: 20210108
  49. TEDUGLUTIDE [Suspect]
     Active Substance: TEDUGLUTIDE
     Dosage: 3.8 MILLIGRAM, 4/WEEK
     Route: 042
     Dates: start: 20210108, end: 20210126
  50. TEDUGLUTIDE [Suspect]
     Active Substance: TEDUGLUTIDE
     Dosage: 3.8 MILLIGRAM, 4/WEEK
     Route: 042
     Dates: start: 20210108, end: 20210126
  51. TEDUGLUTIDE [Suspect]
     Active Substance: TEDUGLUTIDE
     Dosage: 3.8 MILLIGRAM, 4/WEEK
     Route: 042
     Dates: start: 20210108, end: 20210126
  52. TEDUGLUTIDE [Suspect]
     Active Substance: TEDUGLUTIDE
     Dosage: 3.8 MILLIGRAM, 4/WEEK
     Route: 042
     Dates: start: 20210108, end: 20210126
  53. TEDUGLUTIDE [Suspect]
     Active Substance: TEDUGLUTIDE
     Dosage: 3.8 MILLIGRAM, 2/WEEK
     Route: 042
     Dates: start: 20210126, end: 20210407
  54. TEDUGLUTIDE [Suspect]
     Active Substance: TEDUGLUTIDE
     Dosage: 3.8 MILLIGRAM, 2/WEEK
     Route: 042
     Dates: start: 20210126, end: 20210407
  55. TEDUGLUTIDE [Suspect]
     Active Substance: TEDUGLUTIDE
     Dosage: 3.8 MILLIGRAM, 2/WEEK
     Route: 042
     Dates: start: 20210126, end: 20210407
  56. TEDUGLUTIDE [Suspect]
     Active Substance: TEDUGLUTIDE
     Dosage: 3.8 MILLIGRAM, 2/WEEK
     Route: 042
     Dates: start: 20210126, end: 20210407
  57. TEDUGLUTIDE [Suspect]
     Active Substance: TEDUGLUTIDE
     Dosage: 3.8 MILLIGRAM, 3/WEEK
     Route: 042
     Dates: start: 20210408, end: 20210621
  58. TEDUGLUTIDE [Suspect]
     Active Substance: TEDUGLUTIDE
     Dosage: 3.8 MILLIGRAM, 3/WEEK
     Route: 042
     Dates: start: 20210408, end: 20210621
  59. TEDUGLUTIDE [Suspect]
     Active Substance: TEDUGLUTIDE
     Dosage: 3.8 MILLIGRAM, 3/WEEK
     Route: 042
     Dates: start: 20210408, end: 20210621
  60. TEDUGLUTIDE [Suspect]
     Active Substance: TEDUGLUTIDE
     Dosage: 3.8 MILLIGRAM, 3/WEEK
     Route: 042
     Dates: start: 20210408, end: 20210621
  61. TEDUGLUTIDE [Suspect]
     Active Substance: TEDUGLUTIDE
     Dosage: 3.8 MILLIGRAM, 4/WEEK
     Route: 042
     Dates: start: 20210621, end: 20210721
  62. TEDUGLUTIDE [Suspect]
     Active Substance: TEDUGLUTIDE
     Dosage: 3.8 MILLIGRAM, 4/WEEK
     Route: 042
     Dates: start: 20210621, end: 20210721
  63. TEDUGLUTIDE [Suspect]
     Active Substance: TEDUGLUTIDE
     Dosage: 3.8 MILLIGRAM, 4/WEEK
     Route: 042
     Dates: start: 20210621, end: 20210721
  64. TEDUGLUTIDE [Suspect]
     Active Substance: TEDUGLUTIDE
     Dosage: 3.8 MILLIGRAM, 4/WEEK
     Route: 042
     Dates: start: 20210621, end: 20210721
  65. TEDUGLUTIDE [Suspect]
     Active Substance: TEDUGLUTIDE
     Dosage: 3.8 MILLIGRAM, 5/WEEK
     Route: 042
     Dates: start: 20210721, end: 20210902
  66. TEDUGLUTIDE [Suspect]
     Active Substance: TEDUGLUTIDE
     Dosage: 3.8 MILLIGRAM, 5/WEEK
     Route: 042
     Dates: start: 20210721, end: 20210902
  67. TEDUGLUTIDE [Suspect]
     Active Substance: TEDUGLUTIDE
     Dosage: 3.8 MILLIGRAM, 5/WEEK
     Route: 042
     Dates: start: 20210721, end: 20210902
  68. TEDUGLUTIDE [Suspect]
     Active Substance: TEDUGLUTIDE
     Dosage: 3.8 MILLIGRAM, 5/WEEK
     Route: 042
     Dates: start: 20210721, end: 20210902
  69. TEDUGLUTIDE [Suspect]
     Active Substance: TEDUGLUTIDE
     Dosage: 3.8 MILLIGRAM, 3/WEEK
     Route: 042
     Dates: start: 20210903, end: 20210914
  70. TEDUGLUTIDE [Suspect]
     Active Substance: TEDUGLUTIDE
     Dosage: 3.8 MILLIGRAM, 3/WEEK
     Route: 042
     Dates: start: 20210903, end: 20210914
  71. TEDUGLUTIDE [Suspect]
     Active Substance: TEDUGLUTIDE
     Dosage: 3.8 MILLIGRAM, 3/WEEK
     Route: 042
     Dates: start: 20210903, end: 20210914
  72. TEDUGLUTIDE [Suspect]
     Active Substance: TEDUGLUTIDE
     Dosage: 3.8 MILLIGRAM, 3/WEEK
     Route: 042
     Dates: start: 20210903, end: 20210914
  73. TEDUGLUTIDE [Suspect]
     Active Substance: TEDUGLUTIDE
     Dosage: 3.8 MILLIGRAM, 3/WEEK
     Route: 042
     Dates: start: 20210922, end: 20211124
  74. TEDUGLUTIDE [Suspect]
     Active Substance: TEDUGLUTIDE
     Dosage: 3.8 MILLIGRAM, 3/WEEK
     Route: 042
     Dates: start: 20210922, end: 20211124
  75. TEDUGLUTIDE [Suspect]
     Active Substance: TEDUGLUTIDE
     Dosage: 3.8 MILLIGRAM, 3/WEEK
     Route: 042
     Dates: start: 20210922, end: 20211124
  76. TEDUGLUTIDE [Suspect]
     Active Substance: TEDUGLUTIDE
     Dosage: 3.8 MILLIGRAM, 3/WEEK
     Route: 042
     Dates: start: 20210922, end: 20211124
  77. TEDUGLUTIDE [Suspect]
     Active Substance: TEDUGLUTIDE
     Dosage: 3.8 MILLIGRAM, 1/WEEK
     Route: 042
     Dates: start: 20211124, end: 20211202
  78. TEDUGLUTIDE [Suspect]
     Active Substance: TEDUGLUTIDE
     Dosage: 3.8 MILLIGRAM, 1/WEEK
     Route: 042
     Dates: start: 20211124, end: 20211202
  79. TEDUGLUTIDE [Suspect]
     Active Substance: TEDUGLUTIDE
     Dosage: 3.8 MILLIGRAM, 1/WEEK
     Route: 042
     Dates: start: 20211124, end: 20211202
  80. TEDUGLUTIDE [Suspect]
     Active Substance: TEDUGLUTIDE
     Dosage: 3.8 MILLIGRAM, 1/WEEK
     Route: 042
     Dates: start: 20211124, end: 20211202
  81. TEDUGLUTIDE [Suspect]
     Active Substance: TEDUGLUTIDE
     Dosage: 3.8 MILLIGRAM, 2/WEEK
     Route: 042
     Dates: start: 20211202
  82. TEDUGLUTIDE [Suspect]
     Active Substance: TEDUGLUTIDE
     Dosage: 3.8 MILLIGRAM, 2/WEEK
     Route: 042
     Dates: start: 20211202
  83. TEDUGLUTIDE [Suspect]
     Active Substance: TEDUGLUTIDE
     Dosage: 3.8 MILLIGRAM, 2/WEEK
     Route: 042
     Dates: start: 20211202
  84. TEDUGLUTIDE [Suspect]
     Active Substance: TEDUGLUTIDE
     Dosage: 3.8 MILLIGRAM, 2/WEEK
     Route: 042
     Dates: start: 20211202

REACTIONS (3)
  - Vascular device infection [Recovered/Resolved]
  - Pyrexia [Recovered/Resolved]
  - Complication associated with device [Recovered/Resolved]

NARRATIVE: CASE EVENT DATE: 20210607
